FAERS Safety Report 8337135 (Version 4)
Quarter: 2012Q4

REPORT INFORMATION
  Report Type: 
  Country: US (occurrence: US)
  Receive Date: 20120113
  Receipt Date: 20121203
  Transmission Date: 20130627
  Serious: Yes (Hospitalization, Other)
  Sender: FDA-Public Use
  Company Number: US-PFIZER INC-2012004004

PATIENT
  Age: 71 Year
  Sex: Female
  Weight: 67.12 kg

DRUGS (12)
  1. LIPITOR [Suspect]
     Indication: HIGH CHOLESTEROL
     Dosage: 20 mg, once a day
     Route: 048
  2. NORVASC [Suspect]
     Indication: BLOOD PRESSURE HIGH
     Dosage: 10 mg, once a day
     Route: 048
  3. EFFEXOR XR [Suspect]
     Indication: DEPRESSION
     Dosage: 150 mg, once a day
     Route: 048
  4. SYNTHROID [Concomitant]
     Indication: THYROID DISORDER
     Dosage: UNK
  5. PATADAY [Concomitant]
     Indication: ITCHY EYES
     Dosage: UNK
  6. VENTOLIN [Concomitant]
     Indication: BRONCHITIS
     Dosage: UNK
  7. FLOVENT [Concomitant]
     Indication: ASTHMA
     Dosage: UNK, once a day
  8. ASPIRIN [Concomitant]
     Indication: HEART DISORDER
     Dosage: 81 mg, once a day
  9. DRISDOL [Concomitant]
     Dosage: 50000 IU, UNK
  10. VITAMIN D3 [Concomitant]
     Dosage: 600 mg, once a day
  11. NICOTINE [Concomitant]
     Dosage: UNK
  12. CALCIUM [Concomitant]
     Dosage: UNK

REACTIONS (13)
  - Cardiac discomfort [Unknown]
  - Dyspnoea [Unknown]
  - Reading disorder [Unknown]
  - Coronary artery occlusion [Unknown]
  - Feeling abnormal [Unknown]
  - Head discomfort [Unknown]
  - Hypertension [Unknown]
  - Angina pectoris [Unknown]
  - Cataract [Unknown]
  - Eye infection [Unknown]
  - Neoplasm malignant [Unknown]
  - Influenza [Unknown]
  - Body height decreased [Unknown]
